FAERS Safety Report 25299552 (Version 2)
Quarter: 2025Q2

REPORT INFORMATION
  Report Type: Report from Study
  Country: CN (occurrence: CN)
  Receive Date: 20250512
  Receipt Date: 20250516
  Transmission Date: 20250717
  Serious: Yes (Other)
  Sender: ALEXION PHARMACEUTICALS
  Company Number: CN-ASTRAZENECA-202505GLO006135CN

PATIENT
  Age: 9 Year

DRUGS (5)
  1. SELUMETINIB [Suspect]
     Active Substance: SELUMETINIB
     Dosage: 30 MILLIGRAM, QD
     Route: 065
  2. SELUMETINIB [Suspect]
     Active Substance: SELUMETINIB
     Dosage: 30 MILLIGRAM, BID
     Route: 065
  3. SELUMETINIB [Suspect]
     Active Substance: SELUMETINIB
     Dosage: 30 MILLIGRAM, QD
     Route: 065
  4. SELUMETINIB [Suspect]
     Active Substance: SELUMETINIB
     Dosage: 35 MILLIGRAM, QD
     Route: 065
  5. SELUMETINIB [Suspect]
     Active Substance: SELUMETINIB
     Dosage: 35 MILLIGRAM, BID
     Route: 065

REACTIONS (1)
  - Hypoproteinaemia [Not Recovered/Not Resolved]
